FAERS Safety Report 6213013-4 (Version None)
Quarter: 2009Q2

REPORT INFORMATION
  Report Type: 
  Country: None (occurrence: None)
  Receive Date: 20090601
  Receipt Date: 20090601
  Transmission Date: 20091009
  Serious: Yes (Hospitalization)
  Sender: FDA-Public Use
  Company Number: None

PATIENT
  Sex: Male
  Weight: 88.45 kg

DRUGS (1)
  1. FLUOROURACIL [Suspect]
     Dosage: 9600 MG
     Dates: end: 20090513

REACTIONS (1)
  - DIARRHOEA [None]
